FAERS Safety Report 14224050 (Version 1)
Quarter: 2017Q4

REPORT INFORMATION
  Report Type: Spontaneous
  Country: US (occurrence: US)
  Receive Date: 20171124
  Receipt Date: 20171124
  Transmission Date: 20180321
  Serious: No
  Sender: FDA-Public Use
  Company Number: None

PATIENT
  Age: 26 Year
  Sex: Female

DRUGS (2)
  1. NADOLOL. [Suspect]
     Active Substance: NADOLOL
     Indication: CARDIAC DISORDER
     Route: 048
     Dates: start: 20170626, end: 20171124
  2. NADOLOL. [Suspect]
     Active Substance: NADOLOL
     Indication: CARDIAC DISORDER
     Route: 048

REACTIONS (4)
  - Dizziness postural [None]
  - Dizziness [None]
  - Product substitution issue [None]
  - Drug effect variable [None]

NARRATIVE: CASE EVENT DATE: 20171124
